FAERS Safety Report 21861030 (Version 1)
Quarter: 2023Q1

REPORT INFORMATION
  Report Type: Report from Study
  Country: US (occurrence: US)
  Receive Date: 20230113
  Receipt Date: 20230113
  Transmission Date: 20230418
  Serious: No
  Sender: FDA-Public Use
  Company Number: US-ABBVIE-4263887

PATIENT
  Age: 64 Year
  Sex: Female

DRUGS (1)
  1. HUMIRA [Suspect]
     Active Substance: ADALIMUMAB
     Indication: Rheumatoid arthritis
     Dosage: CITRATE FREE; 40 MG
     Route: 058

REACTIONS (5)
  - Influenza like illness [Unknown]
  - Arthralgia [Unknown]
  - Myalgia [Unknown]
  - Oropharyngeal pain [Unknown]
  - Sinus congestion [Unknown]

NARRATIVE: CASE EVENT DATE: 20221201
